FAERS Safety Report 14204870 (Version 1)
Quarter: 2017Q4

REPORT INFORMATION
  Report Type: Spontaneous
  Country: US (occurrence: US)
  Receive Date: 20171118
  Receipt Date: 20171118
  Transmission Date: 20180321
  Serious: Yes (Disabling)
  Sender: FDA-Public Use
  Company Number: None

PATIENT
  Age: 59 Year
  Sex: Female
  Weight: 60.3 kg

DRUGS (13)
  1. RITUXAN [Suspect]
     Active Substance: RITUXIMAB
     Indication: SJOGREN^S SYNDROME
     Dates: start: 20140401, end: 20141001
  2. PLAQUENIL [Concomitant]
     Active Substance: HYDROXYCHLOROQUINE SULFATE
  3. PREDNISONE. [Concomitant]
     Active Substance: PREDNISONE
  4. OMEGA 3 [Concomitant]
     Active Substance: OMEGA-3 FATTY ACIDS
  5. PILOCARPINE. [Concomitant]
     Active Substance: PILOCARPINE
  6. TECFIDERA [Concomitant]
     Active Substance: DIMETHYL FUMARATE
  7. SINEMET [Concomitant]
     Active Substance: CARBIDOPA\LEVODOPA
  8. MODAFINIL. [Concomitant]
     Active Substance: MODAFINIL
  9. MAGNESIUM [Concomitant]
     Active Substance: MAGNESIUM
  10. TUMERIC [Concomitant]
     Active Substance: HERBALS\TURMERIC
  11. SYNTHROID [Concomitant]
     Active Substance: LEVOTHYROXINE SODIUM
  12. GABAPENTIN. [Concomitant]
     Active Substance: GABAPENTIN
  13. COQ10 [Concomitant]
     Active Substance: UBIDECARENONE

REACTIONS (7)
  - Dizziness [None]
  - Muscle spasms [None]
  - Amnesia [None]
  - Gait disturbance [None]
  - Multiple sclerosis [None]
  - Peripheral coldness [None]
  - Burning sensation [None]

NARRATIVE: CASE EVENT DATE: 20141010
